FAERS Safety Report 5736632-8 (Version None)
Quarter: 2008Q2

REPORT INFORMATION
  Report Type: 
  Country: None (occurrence: None)
  Receive Date: 20080513
  Receipt Date: 20080503
  Transmission Date: 20081010
  Serious: Yes (Disabling)
  Sender: FDA-Public Use
  Company Number: NL-PFIZER INC-2008039627

PATIENT
  Sex: Male

DRUGS (2)
  1. LIPITOR [Suspect]
     Route: 048
  2. STATINS [Suspect]
     Route: 048

REACTIONS (1)
  - PAIN IN EXTREMITY [None]
